FAERS Safety Report 13844048 (Version 2)
Quarter: 2017Q3

REPORT INFORMATION
  Report Type: Report from Study
  Country: CA (occurrence: CA)
  Receive Date: 20170808
  Receipt Date: 20170822
  Transmission Date: 20171127
  Serious: Yes (Hospitalization, Other)
  Sender: FDA-Public Use
  Company Number: CA-JNJFOC-20170803356

PATIENT
  Age: 51 Year
  Sex: Female
  Weight: 84 kg

DRUGS (1)
  1. REMICADE [Suspect]
     Active Substance: INFLIXIMAB
     Indication: COLITIS ULCERATIVE
     Dosage: STRENGTH = 100 MG
     Route: 042
     Dates: start: 20170410

REACTIONS (4)
  - Colitis ulcerative [Unknown]
  - Drug effect decreased [Unknown]
  - Arthropod bite [Recovered/Resolved]
  - Snake bite [Recovered/Resolved]

NARRATIVE: CASE EVENT DATE: 20170606
